FAERS Safety Report 5074832-3 (Version None)
Quarter: 2006Q3

REPORT INFORMATION
  Report Type: 
  Country: None (occurrence: None)
  Receive Date: 20060809
  Receipt Date: 20060726
  Transmission Date: 20061208
  Serious: Yes (Death, Hospitalization)
  Sender: FDA-Public Use
  Company Number: PHBS2006JP11284

PATIENT
  Age: 41 Year
  Sex: Female

DRUGS (7)
  1. TEGRETOL [Suspect]
     Indication: CONVULSION
  2. VALPROATE SODIUM [Concomitant]
     Indication: CONVULSION
     Route: 065
  3. ZONISAMIDE [Concomitant]
     Indication: CONVULSION
  4. PREDNISONE [Concomitant]
     Dosage: 30 MG/DAY
  5. PHENOBARBITAL TAB [Concomitant]
  6. IMMUNOGLOBULIN G HUMAN [Concomitant]
  7. STEROIDS NOS [Concomitant]

REACTIONS (7)
  - CYTOMEGALOVIRUS VIRAEMIA [None]
  - ENTERITIS INFECTIOUS [None]
  - HEPATOCELLULAR DAMAGE [None]
  - HUMAN HERPES VIRUS 6 SEROLOGY POSITIVE [None]
  - MULTI-ORGAN FAILURE [None]
  - RASH [None]
  - STATUS EPILEPTICUS [None]
